FAERS Safety Report 9671746 (Version 2)
Quarter: 2014Q1

REPORT INFORMATION
  Report Type: Spontaneous
  Country: US (occurrence: US)
  Receive Date: 20131106
  Receipt Date: 20140201
  Transmission Date: 20141002
  Serious: No
  Sender: FDA-Public Use
  Company Number: US-009507513-1311USA001158

PATIENT
  Sex: Male

DRUGS (1)
  1. TINACTIN LIQUID SPRAY [Suspect]
     Indication: TINEA PEDIS
     Dosage: UNK UNK, UNKNOWN
     Route: 061
     Dates: start: 20131022

REACTIONS (3)
  - Eye irritation [Recovering/Resolving]
  - Accidental exposure to product [Unknown]
  - Product quality issue [Unknown]
